FAERS Safety Report 7711519-X (Version None)
Quarter: 2011Q3

REPORT INFORMATION
  Report Type: 
  Country: None (occurrence: None)
  Receive Date: 20110826
  Receipt Date: 20110818
  Transmission Date: 20111222
  Serious: Yes (Death, Hospitalization)
  Sender: FDA-Public Use
  Company Number: AT-JNJFOC-20110800360

PATIENT
  Sex: Male
  Weight: 86 kg

DRUGS (6)
  1. ABIRATERONE [Suspect]
     Indication: PROSTATE CANCER METASTATIC
     Route: 048
     Dates: start: 20110601, end: 20110629
  2. DEGARELIX [Concomitant]
     Indication: PROSTATE CANCER
     Route: 058
     Dates: start: 20110401
  3. IBANDRONATE [Concomitant]
     Indication: METASTASES TO BONE
     Route: 042
     Dates: start: 20091201
  4. PANTOPRAZOLE [Concomitant]
     Indication: PROPHYLAXIS
     Route: 048
     Dates: start: 20110501
  5. ABIRATERONE [Suspect]
     Route: 048
  6. PREDNISONE [Suspect]
     Indication: PROSTATE CANCER METASTATIC
     Route: 048
     Dates: start: 20110601

REACTIONS (5)
  - RENAL FAILURE ACUTE [None]
  - THROMBOCYTOPENIA [None]
  - ANAEMIA [None]
  - HYPERBILIRUBINAEMIA [None]
  - HEPATIC FAILURE [None]
